FAERS Safety Report 14433499 (Version 1)
Quarter: 2018Q1

REPORT INFORMATION
  Report Type: Spontaneous
  Country: US (occurrence: US)
  Receive Date: 20180124
  Receipt Date: 20180124
  Transmission Date: 20180509
  Serious: No
  Sender: FDA-Public Use
  Company Number: US-PCCINC-T201701914

PATIENT

DRUGS (5)
  1. QUETIAPINE. [Concomitant]
     Active Substance: QUETIAPINE
     Dosage: 50 MG DAILY
  2. GABLOFEN [Suspect]
     Active Substance: BACLOFEN
     Indication: TORTICOLLIS
  3. GABLOFEN [Suspect]
     Active Substance: BACLOFEN
     Indication: MUSCLE SPASTICITY
     Dosage: 500.4 ?G, QD
     Route: 037
  4. KLONOPIN [Concomitant]
     Active Substance: CLONAZEPAM
  5. CYMBALTA [Concomitant]
     Active Substance: DULOXETINE HYDROCHLORIDE
     Dosage: 60 MG DAILY

REACTIONS (6)
  - Headache [Unknown]
  - Pain [Unknown]
  - Device issue [Unknown]
  - Muscle tone disorder [Unknown]
  - Multifocal motor neuropathy [Unknown]
  - Weight increased [Unknown]
